FAERS Safety Report 4875525-5 (Version None)
Quarter: 2005Q4

REPORT INFORMATION
  Report Type: 
  Country: None (occurrence: None)
  Receive Date: 20051227
  Receipt Date: 20051213
  Transmission Date: 20060501
  Serious: Yes (Other)
  Sender: FDA-Public Use
  Company Number: 200510603BYL

PATIENT
  Age: 18 Month
  Sex: Male

DRUGS (3)
  1. GAMIMUNE N 5% [Suspect]
     Indication: KAWASAKI'S DISEASE
     Dosage: 20 G INTRAVENOUS, 3 ML INTRAVENOUS
     Route: 042
     Dates: start: 20051118, end: 20051119
  2. GAMIMUNE N 5% [Suspect]
     Indication: KAWASAKI'S DISEASE
     Dosage: 20 G INTRAVENOUS, 3 ML INTRAVENOUS
     Route: 042
     Dates: start: 20051123
  3. ASPIRIN [Concomitant]

REACTIONS (2)
  - BLOOD PRESSURE INCREASED [None]
  - EPISTAXIS [None]
